FAERS Safety Report 8168270-4 (Version None)
Quarter: 2012Q1

REPORT INFORMATION
  Report Type: 
  Country: None (occurrence: None)
  Receive Date: 20120227
  Receipt Date: 20120213
  Transmission Date: 20120608
  Serious: Yes (Death, Hospitalization, Other)
  Sender: FDA-Public Use
  Company Number: AT-CELGENEUS-009-21880-11011797

PATIENT

DRUGS (3)
  1. ACETYLSALICYLIC ACID SRT [Concomitant]
     Route: 065
  2. REVLIMID [Suspect]
     Dosage: 25 MILLIGRAM
     Route: 048
  3. REVLIMID [Suspect]
     Dosage: 15 MILLIGRAM
     Route: 048

REACTIONS (35)
  - RASH [None]
  - CONJUNCTIVITIS [None]
  - SKIN REACTION [None]
  - MUSCLE SPASMS [None]
  - VOMITING [None]
  - VERTIGO [None]
  - DECREASED APPETITE [None]
  - ARTHRALGIA [None]
  - DIARRHOEA [None]
  - AGITATION [None]
  - DYSGEUSIA [None]
  - PLEURAL EFFUSION [None]
  - LEUKOPENIA [None]
  - NAUSEA [None]
  - EXTRANODAL MARGINAL ZONE B-CELL LYMPHOMA (MALT TYPE) [None]
  - COUGH [None]
  - INSOMNIA [None]
  - BILIARY COLIC [None]
  - PRURITUS [None]
  - FATIGUE [None]
  - TREMOR [None]
  - HEADACHE [None]
  - DRY SKIN [None]
  - PNEUMONIA [None]
  - DYSPEPSIA [None]
  - CONSTIPATION [None]
  - CHRONIC OBSTRUCTIVE PULMONARY DISEASE [None]
  - TUMOUR FLARE [None]
  - NEUTROPENIA [None]
  - LYMPHOMA [None]
  - LYMPHOMA TRANSFORMATION [None]
  - THROMBOCYTOPENIA [None]
  - FEMUR FRACTURE [None]
  - PARAESTHESIA [None]
  - GASTRITIS [None]
